FAERS Safety Report 6340820-X (Version None)
Quarter: 2009Q3

REPORT INFORMATION
  Report Type: 
  Country: None (occurrence: None)
  Receive Date: 20090904
  Receipt Date: 20090827
  Transmission Date: 20100115
  Serious: Yes (Other)
  Sender: FDA-Public Use
  Company Number: PHHY2009JP36709

PATIENT
  Sex: Female
  Weight: 38 kg

DRUGS (5)
  1. CGS 20267 T30748+TAB [Suspect]
     Indication: BREAST CANCER
     Dosage: 2.5 MG/DAY
     Route: 048
     Dates: start: 20071221, end: 20080131
  2. CGS 20267 T30748+TAB [Suspect]
     Dosage: 2.5 MG/DAY
     Route: 048
     Dates: start: 20080314
  3. UFT [Suspect]
     Dosage: 400 MG/DAY
     Route: 048
     Dates: start: 20071221, end: 20080131
  4. UFT [Suspect]
     Dosage: 400 MG/DAY
     Route: 048
     Dates: start: 20080606, end: 20080619
  5. HERCEPTIN [Concomitant]
     Dosage: 76 M, UNK
     Route: 042
     Dates: start: 20071106, end: 20081113

REACTIONS (4)
  - ALANINE AMINOTRANSFERASE INCREASED [None]
  - ASPARTATE AMINOTRANSFERASE INCREASED [None]
  - LIVER DISORDER [None]
  - NAUSEA [None]
